FAERS Safety Report 8420432-4 (Version None)
Quarter: 2012Q2

REPORT INFORMATION
  Report Type: 
  Country: None (occurrence: None)
  Receive Date: 20120607
  Receipt Date: 20120604
  Transmission Date: 20120825
  Serious: Yes (Hospitalization, Other)
  Sender: FDA-Public Use
  Company Number: US-BAYER-2012-056075

PATIENT
  Age: 59 Year
  Sex: Male

DRUGS (3)
  1. KOGENATE FS [Suspect]
     Dosage: CONTINUOUS INFUSION
     Dates: start: 20110101, end: 20110101
  2. KOGENATE FS [Suspect]
     Dosage: PROPHYLAXIS
     Dates: start: 20110101
  3. KOGENATE FS [Suspect]
     Indication: FACTOR VIII DEFICIENCY
     Dosage: ON DEMAND USE
     Dates: start: 20100101

REACTIONS (2)
  - ANTI FACTOR VIII ANTIBODY POSITIVE [None]
  - HAEMORRHAGE [None]
